FAERS Safety Report 19574668 (Version 1)
Quarter: 2021Q3

REPORT INFORMATION
  Report Type: Spontaneous
  Country: US (occurrence: US)
  Receive Date: 20210719
  Receipt Date: 20210719
  Transmission Date: 20211014
  Serious: No
  Sender: FDA-Public Use
  Company Number: US-AUROBINDO-AUR-APL-2020-052586

PATIENT
  Sex: Female

DRUGS (2)
  1. ATOMOXETINE CAPSULES USP 10 MG [Suspect]
     Active Substance: ATOMOXETINE
     Indication: PRODUCT USED FOR UNKNOWN INDICATION
     Dosage: 2 DOSAGE FORM, TWO TIMES A DAY
     Route: 065
     Dates: start: 20200922
  2. ATOMOXETINE CAPSULES [Suspect]
     Active Substance: ATOMOXETINE
     Indication: PRODUCT USED FOR UNKNOWN INDICATION
     Dosage: 25 MILLIGRAM, TWO TIMES A DAY
     Route: 065

REACTIONS (4)
  - Nervousness [Unknown]
  - Product packaging quantity issue [Unknown]
  - Sleep disorder [Unknown]
  - Product physical issue [Unknown]

NARRATIVE: CASE EVENT DATE: 20201009
